FAERS Safety Report 26143158 (Version 1)
Quarter: 2025Q4

REPORT INFORMATION
  Report Type: Report from Study
  Country: EU (occurrence: EU)
  Receive Date: 20251211
  Receipt Date: 20251211
  Transmission Date: 20260117
  Serious: Yes (Hospitalization)
  Sender: TEVA
  Company Number: None

PATIENT
  Age: 17 Year
  Sex: Female

DRUGS (3)
  1. GABAPENTIN [Suspect]
     Active Substance: GABAPENTIN
     Indication: Product used for unknown indication
     Route: 048
     Dates: start: 20251004, end: 20251004
  2. SERTRALINE [Suspect]
     Active Substance: SERTRALINE HYDROCHLORIDE
     Indication: Product used for unknown indication
     Route: 048
     Dates: start: 20251004, end: 20251004
  3. IBUPROFEN [Suspect]
     Active Substance: IBUPROFEN
     Indication: Product used for unknown indication
     Dosage: 6 CP
     Route: 048
     Dates: start: 20251004, end: 20251004

REACTIONS (4)
  - Hyperventilation [Unknown]
  - Poisoning deliberate [Unknown]
  - Toxicity to various agents [Unknown]
  - Tachycardia [Unknown]

NARRATIVE: CASE EVENT DATE: 20251004
